FAERS Safety Report 5556734-9 (Version None)
Quarter: 2007Q4

REPORT INFORMATION
  Report Type: 
  Country: None (occurrence: None)
  Receive Date: 20071211
  Receipt Date: 20071126
  Transmission Date: 20080405
  Serious: Yes (Hospitalization)
  Sender: FDA-Public Use
  Company Number: B0498511A

PATIENT
  Sex: Female

DRUGS (3)
  1. TOPOTECAN HYDROCHLORIDE CAPSULE (GENERIC) (TOPOTECAN) [Suspect]
     Indication: NEUROBLASTOMA
     Dosage: 8 MG, M2, PER DAY; ORAL
     Route: 048
     Dates: start: 20041001
  2. CYCLOPHOSPHAMIDE [Suspect]
     Indication: NEUROBLASTOMA
     Dosage: 50 MG/M2; PER DAY; ORAL
     Route: 048
     Dates: start: 20041001
  3. GEFITINIB (FORMULATION UNKNOWN) (GEFITINIB) [Suspect]
     Indication: NEUROBLASTOMA
     Dosage: 250 MG, PER DAY; ORAL
     Route: 048
     Dates: start: 20041001

REACTIONS (7)
  - DISEASE RECURRENCE [None]
  - DRY SKIN [None]
  - FEBRILE NEUTROPENIA [None]
  - HAEMATOTOXICITY [None]
  - PSEUDOMONAS INFECTION [None]
  - RASH [None]
  - THROMBOCYTOPENIA [None]
